FAERS Safety Report 22257163 (Version 2)
Quarter: 2023Q2

REPORT INFORMATION
  Report Type: Spontaneous
  Country: US (occurrence: US)
  Receive Date: 20230427
  Receipt Date: 20230428
  Transmission Date: 20230721
  Serious: No
  Sender: FDA-Public Use
  Company Number: US-AMGEN-USASP2023071574

PATIENT
  Age: 55 Year
  Sex: Female

DRUGS (30)
  1. OTEZLA [Suspect]
     Active Substance: APREMILAST
     Indication: Psoriasis
     Dosage: 30 MILLIGRAM, BID
     Route: 048
     Dates: start: 202303, end: 20230410
  2. VITAMIN D [Concomitant]
     Active Substance: VITAMIN D NOS
  3. GABAPENTIN [Concomitant]
     Active Substance: GABAPENTIN
  4. LINZESS [Concomitant]
     Active Substance: LINACLOTIDE
  5. ALENDRONATE [Concomitant]
     Active Substance: ALENDRONATE SODIUM
  6. CETIRIZINE [Concomitant]
     Active Substance: CETIRIZINE HYDROCHLORIDE
  7. ATORVASTATIN [Concomitant]
     Active Substance: ATORVASTATIN
  8. NEXIUM [Concomitant]
     Active Substance: ESOMEPRAZOLE MAGNESIUM
  9. NASACORT [Concomitant]
     Active Substance: TRIAMCINOLONE ACETONIDE
  10. TOPIRAMATE [Concomitant]
     Active Substance: TOPIRAMATE
  11. ESCITALOPRAM [Concomitant]
     Active Substance: ESCITALOPRAM OXALATE
  12. METFORMIN [Concomitant]
     Active Substance: METFORMIN HYDROCHLORIDE
  13. SODIUM BICARBONATE [Concomitant]
     Active Substance: SODIUM BICARBONATE
  14. FLUCONAZOLE [Concomitant]
     Active Substance: FLUCONAZOLE
  15. NICOTINE [Concomitant]
     Active Substance: NICOTINE
  16. SPIRONOLACTONE [Concomitant]
     Active Substance: SPIRONOLACTONE
  17. ACETAZOLAMIDE [Concomitant]
     Active Substance: ACETAZOLAMIDE
  18. MACROBID [Concomitant]
     Active Substance: NITROFURANTOIN\NITROFURANTOIN MONOHYDRATE
  19. FOLIC ACID [Concomitant]
     Active Substance: FOLIC ACID
  20. EXEMESTANE [Concomitant]
     Active Substance: EXEMESTANE
  21. DILTIAZEM [Concomitant]
     Active Substance: DILTIAZEM
  22. ATENOLOL [Concomitant]
     Active Substance: ATENOLOL
  23. HYDROCORTISONE [Concomitant]
     Active Substance: HYDROCORTISONE
  24. KETOCONAZOLE [Concomitant]
     Active Substance: KETOCONAZOLE
  25. RESTASIS [Concomitant]
     Active Substance: CYCLOSPORINE
  26. LISINOPRIL [Concomitant]
     Active Substance: LISINOPRIL
  27. FERROUS SULFATE [Concomitant]
     Active Substance: FERROUS SULFATE
  28. ATROPINE SULFATE [Concomitant]
     Active Substance: ATROPINE SULFATE
  29. CYCLOPENTOLATE [Concomitant]
     Active Substance: CYCLOPENTOLATE
  30. PREDNISOLONE [Concomitant]
     Active Substance: PREDNISOLONE

REACTIONS (1)
  - Gastric disorder [Recovered/Resolved]

NARRATIVE: CASE EVENT DATE: 20230301
